FAERS Safety Report 4633815-5 (Version None)
Quarter: 2005Q2

REPORT INFORMATION
  Report Type: 
  Country: None (occurrence: None)
  Receive Date: 20050408
  Receipt Date: 20050404
  Transmission Date: 20051028
  Serious: Yes (Death, Hospitalization)
  Sender: FDA-Public Use
  Company Number: 05P-163-0295373-00

PATIENT
  Age: 65 Year
  Sex: Female

DRUGS (7)
  1. HUMIRA [Suspect]
     Indication: RHEUMATOID ARTHRITIS
     Dosage: 40 MG, 1 IN 2 WK, SUBCUTANEOUS
     Route: 058
     Dates: start: 20040901, end: 20050101
  2. FUROSEMIDE [Concomitant]
  3. COUMADIN [Concomitant]
  4. LEVOTHYROXINE SODIUM [Concomitant]
  5. CALCIUM GLUCONATE [Concomitant]
  6. VICODIN [Concomitant]
  7. POTASSIUM CHLORIDE [Concomitant]

REACTIONS (2)
  - CARDIAC FAILURE CONGESTIVE [None]
  - RENAL FAILURE [None]
